FAERS Safety Report 25418948 (Version 1)
Quarter: 2025Q2

REPORT INFORMATION
  Report Type: Spontaneous
  Country: GB (occurrence: GB)
  Receive Date: 20250610
  Receipt Date: 20250610
  Transmission Date: 20250717
  Serious: Yes (Other)
  Sender: TORRENT PHARMA INC.
  Company Number: None

PATIENT
  Age: 64 Year
  Sex: Male
  Weight: 118 kg

DRUGS (9)
  1. LOSARTAN [Suspect]
     Active Substance: LOSARTAN
     Indication: Ill-defined disorder
     Route: 065
  2. AMLODIPINE [Concomitant]
     Active Substance: AMLODIPINE BESYLATE
     Indication: Ill-defined disorder
     Route: 065
     Dates: start: 20240124
  3. ASPIRIN [Concomitant]
     Active Substance: ASPIRIN
     Indication: Ill-defined disorder
     Route: 065
     Dates: start: 20240124
  4. ATORVASTATIN [Concomitant]
     Active Substance: ATORVASTATIN
     Indication: Ill-defined disorder
     Route: 065
     Dates: start: 20240124, end: 20250417
  5. BISOPROLOL [Concomitant]
     Active Substance: BISOPROLOL
     Indication: Ill-defined disorder
     Route: 065
     Dates: start: 20240124
  6. CANDESARTAN [Concomitant]
     Active Substance: CANDESARTAN
     Indication: Ill-defined disorder
     Route: 065
     Dates: start: 20250529
  7. EZETIMIBE [Concomitant]
     Active Substance: EZETIMIBE
     Indication: Ill-defined disorder
     Route: 065
     Dates: start: 20250417
  8. NITROGLYCERIN [Concomitant]
     Active Substance: NITROGLYCERIN
     Indication: Ill-defined disorder
     Route: 065
     Dates: start: 20240124
  9. LANSOPRAZOLE [Concomitant]
     Active Substance: LANSOPRAZOLE
     Indication: Ill-defined disorder
     Route: 065
     Dates: start: 20240124

REACTIONS (1)
  - Chest discomfort [Recovered/Resolved]
